FAERS Safety Report 5414610-6 (Version None)
Quarter: 2007Q3

REPORT INFORMATION
  Report Type: 
  Country: None (occurrence: None)
  Receive Date: 20070813
  Receipt Date: 20070716
  Transmission Date: 20080115
  Serious: Yes (Other)
  Sender: FDA-Public Use
  Company Number: 2007US001863

PATIENT
  Age: 49 Year
  Sex: Male

DRUGS (7)
  1. PROGRAF [Suspect]
     Indication: PROPHYLAXIS AGAINST TRANSPLANT REJECTION
  2. INTERFERON (INTERFERON) [Concomitant]
  3. RIBAVIRIN [Concomitant]
  4. MYCOPHENOLATE MOFETIL [Concomitant]
  5. PREDNISONE TAB [Concomitant]
  6. TRIMETOPRIM + SULFAMETOXAZOL (SULFAMETHOXAZOLE, TRIMETHOPRIM) [Concomitant]
  7. GANCICLOVIR [Concomitant]

REACTIONS (7)
  - ASCITES [None]
  - DISEASE RECURRENCE [None]
  - HEPATIC FIBROSIS [None]
  - HEPATITIS CHRONIC ACTIVE [None]
  - LYMPHOEDEMA [None]
  - OEDEMA PERIPHERAL [None]
  - POST PROCEDURAL COMPLICATION [None]
